FAERS Safety Report 6530731-9 (Version None)
Quarter: 2010Q1

REPORT INFORMATION
  Report Type: 
  Country: None (occurrence: None)
  Receive Date: 20100108
  Receipt Date: 20081219
  Transmission Date: 20100710
  Serious: No
  Sender: FDA-Public Use
  Company Number: A0761213A

PATIENT
  Sex: Male

DRUGS (1)
  1. LOVAZA [Suspect]
     Indication: BLOOD CHOLESTEROL INCREASED
     Dosage: 4G PER DAY
     Route: 048
     Dates: start: 20081101

REACTIONS (1)
  - BLOOD CHOLESTEROL INCREASED [None]
